FAERS Safety Report 22827373 (Version 2)
Quarter: 2023Q4

REPORT INFORMATION
  Report Type: Spontaneous
  Country: GB (occurrence: GB)
  Receive Date: 20230816
  Receipt Date: 20231002
  Transmission Date: 20240110
  Serious: Yes (Other)
  Sender: FDA-Public Use
  Company Number: GB-ACRAF SpA-2023-031693

PATIENT

DRUGS (3)
  1. XCOPRI [Suspect]
     Active Substance: CENOBAMATE
     Indication: Epilepsy
     Dosage: PATIENT STARTED CENOBAMATE (12.5MG O/D)
     Route: 048
     Dates: start: 20230726, end: 20230809
  2. LAMOTRIGINE [Concomitant]
     Active Substance: LAMOTRIGINE
     Indication: Product used for unknown indication
     Dosage: 225MG TWICE A DAY
     Route: 065
  3. CLOBAZAM [Concomitant]
     Active Substance: CLOBAZAM
     Indication: Product used for unknown indication
     Dosage: 10MG THREE TIMES A  DAY
     Route: 065

REACTIONS (5)
  - Heart rate abnormal [Unknown]
  - Ventricular extrasystoles [Unknown]
  - Chest pain [Unknown]
  - Heart rate decreased [Unknown]
  - Palpitations [Unknown]

NARRATIVE: CASE EVENT DATE: 20230730
